FAERS Safety Report 13650518 (Version 1)
Quarter: 2017Q2

REPORT INFORMATION
  Report Type: Spontaneous
  Country: US (occurrence: US)
  Receive Date: 20170614
  Receipt Date: 20170614
  Transmission Date: 20170830
  Serious: Yes (Life-Threatening, Hospitalization, Disabling, Other)
  Sender: FDA-Public Use
  Company Number: None

PATIENT
  Age: 78 Year
  Sex: Female
  Weight: 99 kg

DRUGS (10)
  1. SINGULAIR [Concomitant]
     Active Substance: MONTELUKAST SODIUM
  2. ASPIRIN. [Concomitant]
     Active Substance: ASPIRIN
  3. ELIQUIS [Suspect]
     Active Substance: APIXABAN
     Indication: PULMONARY EMBOLISM
     Dosage: ?          QUANTITY:2 TABLET(S);?
     Route: 048
     Dates: start: 20151030, end: 20170607
  4. VITIMINS MULTI [Concomitant]
  5. ICE PACK [Concomitant]
  6. TRIAMPTERINE [Concomitant]
  7. PEPTO-BISMOL [Concomitant]
     Active Substance: BISMUTH SUBSALICYLATE
  8. KEPPRA [Concomitant]
     Active Substance: LEVETIRACETAM
  9. HCTZ [Concomitant]
     Active Substance: HYDROCHLOROTHIAZIDE
  10. HEAT PAD [Concomitant]

REACTIONS (6)
  - Depression [None]
  - Seizure [None]
  - Skin atrophy [None]
  - Suicidal ideation [None]
  - Peripheral swelling [None]
  - Haemorrhagic diathesis [None]

NARRATIVE: CASE EVENT DATE: 20161222
